FAERS Safety Report 20430766 (Version 3)
Quarter: 2022Q1

REPORT INFORMATION
  Report Type: Spontaneous
  Country: US (occurrence: US)
  Receive Date: 20220204
  Receipt Date: 20220303
  Transmission Date: 20220423
  Serious: No
  Sender: FDA-Public Use
  Company Number: US-GSKCCFUS-Case-01284373_AE-74928

PATIENT
  Sex: Female
  Weight: 45.351 kg

DRUGS (1)
  1. TRELEGY ELLIPTA [Suspect]
     Active Substance: FLUTICASONE FUROATE\UMECLIDINIUM BROMIDE\VILANTEROL TRIFENATATE
     Indication: Product used for unknown indication
     Dosage: 1 PUFF(S), QD , 200/62.5/25 MCG
     Route: 055

REACTIONS (2)
  - Prescription drug used without a prescription [Unknown]
  - Product complaint [Unknown]
